FAERS Safety Report 9491005 (Version 1)
Quarter: 2013Q3

REPORT INFORMATION
  Report Type: Spontaneous
  Country: US (occurrence: US)
  Receive Date: 20130830
  Receipt Date: 20130830
  Transmission Date: 20140515
  Serious: No
  Sender: FDA-Public Use
  Company Number: US-PFIZER INC-2013247223

PATIENT
  Age: 64 Year
  Sex: Female
  Weight: 50 kg

DRUGS (5)
  1. CHANTIX [Suspect]
     Indication: SMOKING CESSATION THERAPY
     Dosage: 0.5 MG, 1X/DAY
     Route: 048
     Dates: end: 201305
  2. ALPRAZOLAM [Concomitant]
     Indication: ANXIETY
     Dosage: UNK
  3. ALPRAZOLAM [Concomitant]
     Indication: PANIC ATTACK
  4. ALPRAZOLAM [Concomitant]
     Indication: INSOMNIA
  5. ASPIRIN [Concomitant]
     Dosage: UNK

REACTIONS (1)
  - Abnormal dreams [Unknown]
